FAERS Safety Report 6477181-1 (Version None)
Quarter: 2009Q4

REPORT INFORMATION
  Report Type: 
  Country: None (occurrence: None)
  Receive Date: 20091204
  Receipt Date: 20091204
  Transmission Date: 20100525
  Serious: No
  Sender: FDA-Public Use
  Company Number: None

PATIENT

DRUGS (2)
  1. OPTIRAY 350 [Suspect]
     Indication: COMPUTERISED TOMOGRAM
     Dosage: 125ML ONE TIME IV
     Route: 042
     Dates: start: 20091107, end: 20091203
  2. OPTIRAY 350 [Suspect]

REACTIONS (2)
  - DEVICE BREAKAGE [None]
  - SYRINGE ISSUE [None]
